FAERS Safety Report 16777971 (Version 3)
Quarter: 2021Q1

REPORT INFORMATION
  Report Type: Report from Study
  Country: JP (occurrence: JP)
  Receive Date: 20190905
  Receipt Date: 20210212
  Transmission Date: 20210419
  Serious: No
  Sender: FDA-Public Use
  Company Number: JP-SHIRE-JP201928789

PATIENT
  Age: 14 Year
  Sex: Male

DRUGS (1)
  1. 503 (GUANFACINE HYDROCHLORIDE) [Suspect]
     Active Substance: GUANFACINE HYDROCHLORIDE
     Indication: ATTENTION DEFICIT HYPERACTIVITY DISORDER
     Dosage: 1 MILLIGRAM, QD
     Route: 048
     Dates: start: 20180208, end: 20180213

REACTIONS (4)
  - Dizziness [Unknown]
  - Somnolence [Unknown]
  - Visual impairment [Unknown]
  - Influenza [Unknown]

NARRATIVE: CASE EVENT DATE: 20180213
